FAERS Safety Report 7298394-5 (Version None)
Quarter: 2011Q1

REPORT INFORMATION
  Report Type: 
  Country: None (occurrence: None)
  Receive Date: 20110217
  Receipt Date: 20100506
  Transmission Date: 20110831
  Serious: No
  Sender: FDA-Public Use
  Company Number: US-PFIZER INC-2010046617

PATIENT
  Sex: Female
  Weight: 45.812 kg

DRUGS (4)
  1. LATANOPROST [Suspect]
  2. DICLOFENAC [Concomitant]
     Indication: HYPOTONIA
     Dosage: UNK
  3. DORZOLAMIDE [Concomitant]
     Dosage: UNK
     Route: 047
  4. XALATAN [Suspect]
     Indication: INTRAOCULAR PRESSURE TEST
     Dosage: UNK
     Route: 047
     Dates: start: 20070101

REACTIONS (2)
  - VISUAL FIELD TESTS ABNORMAL [None]
  - DRUG DOSE OMISSION [None]
